FAERS Safety Report 8904401 (Version 1)
Quarter: 2012Q4

REPORT INFORMATION
  Report Type: 
  Country: US (occurrence: US)
  Receive Date: 20121112
  Receipt Date: 20121112
  Transmission Date: 20130627
  Serious: No
  Sender: FDA-Public Use
  Company Number: US-BAYER-2012-115537

PATIENT
  Sex: Female

DRUGS (1)
  1. FINACEA [Suspect]

REACTIONS (1)
  - Hypersensitivity [None]
